FAERS Safety Report 14182741 (Version 1)
Quarter: 2017Q4

REPORT INFORMATION
  Report Type: Spontaneous
  Country: JP (occurrence: JP)
  Receive Date: 20171113
  Receipt Date: 20171113
  Transmission Date: 20180321
  Serious: Yes (Death)
  Sender: FDA-Public Use
  Company Number: JP-NOVOPROD-571346

PATIENT
  Age: 53 Year
  Sex: Male

DRUGS (9)
  1. NOVORAPID [Suspect]
     Active Substance: INSULIN ASPART
     Indication: TYPE 2 DIABETES MELLITUS
     Dosage: 2 U, QD (EVENING)
     Route: 058
     Dates: start: 20161005
  2. NOVORAPID [Suspect]
     Active Substance: INSULIN ASPART
     Dosage: 3 U, QD (NOON)
     Route: 058
     Dates: start: 20161118, end: 20170905
  3. RYZODEG 70/30 [Concomitant]
     Active Substance: INSULIN ASPART\INSULIN DEGLUDEC
     Dosage: 18 U, QD  (6-0-12U/DAY)
     Route: 058
     Dates: start: 20161209
  4. RYZODEG 70/30 [Concomitant]
     Active Substance: INSULIN ASPART\INSULIN DEGLUDEC
     Dosage: 18 U, QD (6-0-12U/DAY)
     Route: 058
     Dates: start: 20170310, end: 20170905
  5. RYZODEG 70/30 [Concomitant]
     Active Substance: INSULIN ASPART\INSULIN DEGLUDEC
     Dosage: UNK
  6. TRAZENTA [Concomitant]
     Active Substance: LINAGLIPTIN
     Indication: TYPE 2 DIABETES MELLITUS
     Dosage: 5 MG, QD
     Route: 048
     Dates: end: 20170905
  7. SODIUM RABEPRAZOLE [Concomitant]
     Active Substance: RABEPRAZOLE SODIUM
     Dosage: 10 MG, QD
     Route: 048
     Dates: end: 20170905
  8. RYZODEG 70/30 [Concomitant]
     Active Substance: INSULIN ASPART\INSULIN DEGLUDEC
     Indication: TYPE 2 DIABETES MELLITUS
     Dosage: 12 U, QD (8-0-4U/DAY)
     Route: 058
     Dates: start: 20160921
  9. RYZODEG 70/30 [Concomitant]
     Active Substance: INSULIN ASPART\INSULIN DEGLUDEC
     Dosage: 14 U, QD (10-0-4U/DAY)
     Route: 058
     Dates: start: 20161009

REACTIONS (1)
  - Death [Fatal]

NARRATIVE: CASE EVENT DATE: 20170906
